FAERS Safety Report 6942840-0 (Version None)
Quarter: 2010Q3

REPORT INFORMATION
  Report Type: 
  Country: None (occurrence: None)
  Receive Date: 20100826
  Receipt Date: 20100818
  Transmission Date: 20110219
  Serious: Yes (Death)
  Sender: FDA-Public Use
  Company Number: CO-ROCHE-721736

PATIENT
  Sex: Female

DRUGS (2)
  1. AVASTIN [Suspect]
     Indication: BREAST CANCER
     Dosage: FORM : INFUSION.  LAST INFUSION RECEIVED ON 21 JULY 2010
     Route: 042
     Dates: start: 20100623, end: 20100721
  2. XELODA [Suspect]
     Indication: BREAST CANCER
     Dosage: FREQUENCY : EVERY DAY
     Route: 048
     Dates: start: 20100623, end: 20100813

REACTIONS (1)
  - MALIGNANT NEOPLASM PROGRESSION [None]
